FAERS Safety Report 8168003-1 (Version None)
Quarter: 2012Q1

REPORT INFORMATION
  Report Type: 
  Country: None (occurrence: None)
  Receive Date: 20120227
  Receipt Date: 20120210
  Transmission Date: 20120608
  Serious: Yes (Other)
  Sender: FDA-Public Use
  Company Number: US-ROCHE-1011897

PATIENT
  Sex: Male

DRUGS (1)
  1. ZELBORAF [Suspect]
     Indication: PRODUCT USED FOR UNKNOWN INDICATION

REACTIONS (9)
  - DISEASE PROGRESSION [None]
  - MASS [None]
  - RASH [None]
  - ALOPECIA [None]
  - SKIN PAPILLOMA [None]
  - SUNBURN [None]
  - PRURITUS [None]
  - FATIGUE [None]
  - MELANOCYTIC NAEVUS [None]
